FAERS Safety Report 19426609 (Version 1)
Quarter: 2021Q2

REPORT INFORMATION
  Report Type: Other
  Country: IN (occurrence: IN)
  Receive Date: 20210616
  Receipt Date: 20210616
  Transmission Date: 20210717
  Serious: Yes (Hospitalization)
  Sender: FDA-Public Use
  Company Number: IN-B.BRAUN MEDICAL INC.-2112804

PATIENT
  Age: 13 Year
  Sex: Female

DRUGS (10)
  1. POTASSIUM CHLORIDE FOR INJECTION CONCENTRATE USP 0264?1940?20 (ANDA 08 [Suspect]
     Active Substance: POTASSIUM CHLORIDE
     Indication: HYPOKALAEMIA
  2. ETHIONAMIDE [Concomitant]
     Active Substance: ETHIONAMIDE
  3. ETHAMBUTOL [Concomitant]
     Active Substance: ETHAMBUTOL HYDROCHLORIDE
  4. CLOFAZAMINE [Concomitant]
     Active Substance: CLOFAZIMINE
  5. MOXIFLOXACIN. [Concomitant]
     Active Substance: MOXIFLOXACIN
  6. LINEZOLID. [Concomitant]
     Active Substance: LINEZOLID
  7. CYCLOSERINE. [Concomitant]
     Active Substance: CYCLOSERINE
  8. CAPREOMYCIN SULFATE. [Concomitant]
     Active Substance: CAPREOMYCIN SULFATE
  9. KANAMYCIN [Concomitant]
     Active Substance: KANAMYCIN A SULFATE
  10. PYRAZINAMIDE. [Concomitant]
     Active Substance: PYRAZINAMIDE

REACTIONS (1)
  - Drug ineffective [None]
